FAERS Safety Report 8586128-3 (Version None)
Quarter: 2012Q3

REPORT INFORMATION
  Report Type: 
  Country: None (occurrence: None)
  Receive Date: 20120810
  Receipt Date: 20120806
  Transmission Date: 20120928
  Serious: Yes (Hospitalization)
  Sender: FDA-Public Use
  Company Number: BE-PFIZER INC-2012192230

PATIENT
  Sex: Female
  Weight: 70 kg

DRUGS (12)
  1. GENOTROPIN [Suspect]
     Dosage: 0.5 MG,7/WK
     Route: 058
     Dates: start: 20060612
  2. REDOMEX [Concomitant]
     Indication: MUSCULOSKELETAL PAIN
     Dosage: UNK
  3. REDOMEX [Concomitant]
     Indication: FIBROMYALGIA
  4. REDOMEX [Concomitant]
     Indication: MYALGIA
  5. MOBIC [Concomitant]
     Indication: INFLAMMATION
  6. LEVOTHYROXINE [Concomitant]
     Indication: BLOOD THYROID STIMULATING HORMONE DECREASED
     Dosage: UNK
  7. CLONAZEPAM [Concomitant]
     Indication: FIBROMYALGIA
  8. INDAPAMIDE [Concomitant]
     Indication: HYPERTENSION
     Dosage: UNK
  9. MOBIC [Concomitant]
     Indication: ANTIINFLAMMATORY THERAPY
     Dosage: UNK
  10. GLUCOPHAGE [Concomitant]
     Indication: GLUCOSE TOLERANCE TEST ABNORMAL
     Dosage: UNK
  11. CLONAZEPAM [Concomitant]
     Indication: MUSCULOSKELETAL PAIN
     Dosage: UNK
  12. CLONAZEPAM [Concomitant]
     Indication: MYALGIA

REACTIONS (1)
  - PAIN [None]
